FAERS Safety Report 24767782 (Version 1)
Quarter: 2024Q4

REPORT INFORMATION
  Report Type: Spontaneous
  Country: US (occurrence: US)
  Receive Date: 20241223
  Receipt Date: 20241223
  Transmission Date: 20250115
  Serious: No
  Sender: INCYTE
  Company Number: US-EVENT-000792

PATIENT

DRUGS (1)
  1. OPZELURA [Suspect]
     Active Substance: RUXOLITINIB PHOSPHATE
     Indication: Dermatitis atopic
     Dosage: APPLY A THIN LAYER TO AFFECTED AREA(S) OF HANDS TWICE DAILY AS NEEDED FOR FLARES
     Route: 061
     Dates: start: 202411

REACTIONS (4)
  - Pharyngitis streptococcal [Unknown]
  - Burning sensation [Unknown]
  - Wound [Unknown]
  - Scratch [Unknown]
